FAERS Safety Report 25074626 (Version 1)
Quarter: 2025Q1

REPORT INFORMATION
  Report Type: Spontaneous
  Country: US (occurrence: None)
  Receive Date: 20250313
  Receipt Date: 20250313
  Transmission Date: 20250409
  Serious: No
  Sender: FDA-CTU
  Company Number: None

PATIENT
  Age: 3 Year
  Sex: Female
  Weight: 13.7 kg

DRUGS (3)
  1. AQNEURSA [Suspect]
     Active Substance: ACETYLLEUCINE, L-
     Indication: Niemann-Pick disease
     Dosage: FREQUENCY : TWICE A DAY;?
     Dates: start: 20241219
  2. OMEPRAZOLE [Concomitant]
     Active Substance: OMEPRAZOLE
  3. URSODIOL [Concomitant]
     Active Substance: URSODIOL

REACTIONS (2)
  - Pneumonia [None]
  - Diaphragmatic hernia [None]

NARRATIVE: CASE EVENT DATE: 20250224
